FAERS Safety Report 15389767 (Version 2)
Quarter: 2019Q1

REPORT INFORMATION
  Report Type: Spontaneous
  Country: CA (occurrence: CA)
  Receive Date: 20180917
  Receipt Date: 20190125
  Transmission Date: 20190417
  Serious: Yes (Life-Threatening, Hospitalization, Disabling, Other)
  Sender: FDA-Public Use
  Company Number: CA-EMD SERONO-9043772

PATIENT
  Age: 39 Year
  Sex: Female

DRUGS (2)
  1. REBIF [Suspect]
     Active Substance: INTERFERON BETA-1A
     Indication: MULTIPLE SCLEROSIS
     Dates: start: 20080120, end: 20180726
  2. METHOTREXATE. [Concomitant]
     Active Substance: METHOTREXATE
     Indication: ARTHRITIS
     Dates: end: 201802

REACTIONS (6)
  - Acute kidney injury [Unknown]
  - Hypertension [Unknown]
  - Abortion [Recovered/Resolved]
  - Maternal exposure during pregnancy [Recovered/Resolved]
  - Microangiopathic haemolytic anaemia [Recovering/Resolving]
  - Thrombotic microangiopathy [Unknown]

NARRATIVE: CASE EVENT DATE: 2018
